FAERS Safety Report 5800630-6 (Version None)
Quarter: 2008Q3

REPORT INFORMATION
  Report Type: 
  Country: None (occurrence: None)
  Receive Date: 20080702
  Receipt Date: 20080702
  Transmission Date: 20090109
  Serious: Yes (Hospitalization)
  Sender: FDA-Public Use
  Company Number: None

PATIENT
  Age: 59 Year
  Sex: Male
  Weight: 89.8 kg

DRUGS (7)
  1. BORTEZOMIB [Suspect]
     Indication: MANTLE CELL LYMPHOMA
     Dosage: 5.4 MG D1+4 IV
     Route: 042
     Dates: start: 20080616
  2. BORTEZOMIB [Suspect]
     Indication: MANTLE CELL LYMPHOMA
     Dosage: 5.4 MG D1+4 IV
     Route: 042
     Dates: start: 20080619
  3. CYCLOPHOSPHAMIDE [Suspect]
     Dosage: 3780 MG D1, 2,3 IV
     Route: 042
     Dates: start: 20080616, end: 20080619
  4. RITUXAN  790MG  IV DAY 1 [Suspect]
     Dosage: 790MG IV DAY 1
     Route: 042
     Dates: start: 20080616
  5. DOXORUBICIN HCL [Suspect]
     Dosage: 106MG  D1-2 CIV
     Route: 042
     Dates: start: 20080616, end: 20080617
  6. DEXAMETHASONE [Suspect]
     Dosage: 160MG PO
     Route: 048
     Dates: start: 20080616, end: 20080619
  7. VINCRISTINE [Suspect]
     Dosage: 1MG
     Dates: start: 20080619

REACTIONS (5)
  - FEBRILE NEUTROPENIA [None]
  - INFECTION [None]
  - PLATELET COUNT DECREASED [None]
  - PNEUMONIA [None]
  - WHITE BLOOD CELL COUNT INCREASED [None]
